FAERS Safety Report 4572620-5 (Version None)
Quarter: 2005Q1

REPORT INFORMATION
  Report Type: 
  Country: None (occurrence: None)
  Receive Date: 20050208
  Receipt Date: 20041214
  Transmission Date: 20050727
  Serious: Yes (Hospitalization)
  Sender: FDA-Public Use
  Company Number: PHRM2004FR03672

PATIENT
  Age: 31 Year
  Sex: Female

DRUGS (3)
  1. PARLODEL [Suspect]
     Indication: HYPOTHALAMO-PITUITARY DISORDERS
     Dosage: UNK, UNK
     Route: 048
     Dates: start: 19960115, end: 19970715
  2. NORPROLAC [Suspect]
     Dosage: UNK, UNK
     Route: 048
     Dates: start: 19970715, end: 19991015
  3. DOSTINEX [Suspect]
     Dosage: 1 MG/WEEK
     Route: 048
     Dates: start: 20001215, end: 20041109

REACTIONS (2)
  - BENIGN BREAST NEOPLASM [None]
  - BREAST LUMP REMOVAL [None]
